FAERS Safety Report 15638010 (Version 1)
Quarter: 2018Q4

REPORT INFORMATION
  Report Type: Spontaneous
  Country: US (occurrence: US)
  Receive Date: 20181120
  Receipt Date: 20181120
  Transmission Date: 20190205
  Serious: No
  Sender: FDA-Public Use
  Company Number: US-JNJFOC-20180629985

PATIENT
  Sex: Female

DRUGS (5)
  1. IMBRUVICA [Suspect]
     Active Substance: IBRUTINIB
     Indication: PRODUCT USED FOR UNKNOWN INDICATION
     Route: 048
  2. COMPAZINE [Concomitant]
     Active Substance: PROCHLORPERAZINE MALEATE
  3. PREDNISONE. [Concomitant]
     Active Substance: PREDNISONE
  4. ACYCLOVIR. [Concomitant]
     Active Substance: ACYCLOVIR
  5. GLIPIZIDE. [Concomitant]
     Active Substance: GLIPIZIDE

REACTIONS (7)
  - Off label use [Unknown]
  - Rash [Unknown]
  - Scratch [Unknown]
  - Product use issue [Unknown]
  - Erythema [Unknown]
  - Pruritus [Unknown]
  - Rash papular [Unknown]
